FAERS Safety Report 11129512 (Version 3)
Quarter: 2015Q3

REPORT INFORMATION
  Report Type: Spontaneous
  Country: CA (occurrence: CA)
  Receive Date: 20150521
  Receipt Date: 20150701
  Transmission Date: 20151125
  Serious: Yes (Other)
  Sender: FDA-Public Use
  Company Number: CHPA2015CA006463

PATIENT
  Age: 60 Year
  Sex: Male

DRUGS (3)
  1. VOLTAREN EMULGEL EXTRA STRENGHT [Suspect]
     Active Substance: DICLOFENAC DIETHYLAMINE
     Indication: MENISCUS INJURY
     Dosage: UNK
     Route: 061
     Dates: start: 20150516, end: 2015
  2. ACETYLSALICYLIC ACID [Suspect]
     Active Substance: ASPIRIN
     Indication: PRODUCT USED FOR UNKNOWN INDICATION
     Dosage: UNK
     Route: 065
     Dates: start: 201505
  3. VOLTAREN EMULGEL EXTRA STRENGHT [Suspect]
     Active Substance: DICLOFENAC DIETHYLAMINE
     Indication: JOINT RANGE OF MOTION DECREASED

REACTIONS (6)
  - Hypertension [Unknown]
  - Arthralgia [Not Recovered/Not Resolved]
  - Meniscus injury [Not Recovered/Not Resolved]
  - Joint range of motion decreased [Unknown]
  - Blood cholesterol increased [Unknown]
  - Wrong technique in product usage process [Unknown]

NARRATIVE: CASE EVENT DATE: 20150516
